FAERS Safety Report 7706458-4 (Version None)
Quarter: 2011Q3

REPORT INFORMATION
  Report Type: 
  Country: None (occurrence: None)
  Receive Date: 20110824
  Receipt Date: 20110822
  Transmission Date: 20111222
  Serious: Yes (Death, Hospitalization)
  Sender: FDA-Public Use
  Company Number: JP-B.I. PHARMACEUTICALS,INC./RIDGEFIELD-2011-BP-18851NB

PATIENT
  Age: 85 Year
  Sex: Male
  Weight: 43 kg

DRUGS (7)
  1. MICARDIS [Concomitant]
     Dosage: 20 MG
     Route: 048
     Dates: start: 20071126
  2. MECOBALAMIN [Concomitant]
     Dosage: 1500 MCG
     Route: 048
  3. WARFARIN SODIUM [Concomitant]
     Dosage: 1 MG
     Route: 048
     Dates: start: 20110709, end: 20110715
  4. ASPIRIN [Concomitant]
     Dosage: 100 MG
     Route: 048
     Dates: start: 20071126
  5. TENORMIN [Concomitant]
     Dosage: 25 MG
     Route: 048
  6. PRADAXA [Suspect]
     Indication: ATRIAL FIBRILLATION
     Dosage: 220 MG
     Route: 048
     Dates: start: 20110404, end: 20110709
  7. LOCHOLEST [Concomitant]
     Dosage: 20 MG
     Route: 048

REACTIONS (7)
  - HEADACHE [None]
  - HEAT ILLNESS [None]
  - DECREASED APPETITE [None]
  - GASTROINTESTINAL HAEMORRHAGE [None]
  - DISSEMINATED TUBERCULOSIS [None]
  - NAUSEA [None]
  - DEHYDRATION [None]
